FAERS Safety Report 6049979-5 (Version None)
Quarter: 2009Q1

REPORT INFORMATION
  Report Type: 
  Country: None (occurrence: None)
  Receive Date: 20090121
  Receipt Date: 20081229
  Transmission Date: 20090719
  Serious: Yes (Congenital Anomaly)
  Sender: FDA-Public Use
  Company Number: 8033440

PATIENT
  Sex: Female
  Weight: 3.88 kg

DRUGS (5)
  1. KEPPRA [Suspect]
     Indication: EPILEPSY
     Dosage: 1000 MG 2/D TRP
     Route: 064
     Dates: start: 20070220, end: 20071124
  2. VALTREX [Concomitant]
  3. PROTONIX [Concomitant]
  4. FOLIC ACID [Concomitant]
  5. PRENATAL [Concomitant]

REACTIONS (3)
  - BRACHIAL PLEXUS INJURY [None]
  - CONGENITAL ANOMALY [None]
  - MATERNAL DRUGS AFFECTING FOETUS [None]
